FAERS Safety Report 16210768 (Version 5)
Quarter: 2019Q2

REPORT INFORMATION
  Report Type: Spontaneous
  Country: US (occurrence: US)
  Receive Date: 20190418
  Receipt Date: 20190628
  Transmission Date: 20190711
  Serious: Yes (Other)
  Sender: FDA-Public Use
  Company Number: US-AMGEN-USASP2019058927

PATIENT
  Age: 47 Year
  Sex: Male
  Weight: 126.89 kg

DRUGS (3)
  1. SENSIPAR [Suspect]
     Active Substance: CINACALCET HYDROCHLORIDE
     Indication: PARATHYROID DISORDER
     Dosage: 60 MILLIGRAM, QD
     Route: 048
     Dates: start: 20160902, end: 201811
  2. SENSIPAR [Suspect]
     Active Substance: CINACALCET HYDROCHLORIDE
     Indication: HYPERPARATHYROIDISM
     Dosage: UNK
     Route: 048
     Dates: start: 20190307
  3. PHOSLO [Concomitant]
     Active Substance: CALCIUM ACETATE
     Dosage: 667 MILLIGRAM, TID
     Dates: start: 20150106, end: 20190316

REACTIONS (2)
  - Blood calcium increased [Not Recovered/Not Resolved]
  - Renal transplant [Unknown]

NARRATIVE: CASE EVENT DATE: 201811
